FAERS Safety Report 20459931 (Version 15)
Quarter: 2022Q3

REPORT INFORMATION
  Report Type: Report from Study
  Country: CN (occurrence: None)
  Receive Date: 20220211
  Receipt Date: 20220913
  Transmission Date: 20221027
  Serious: Yes (Hospitalization)
  Sender: FDA-Public Use
  Company Number: CN-ROCHE-3014049

PATIENT
  Age: 28 Year
  Sex: Male
  Weight: 68 kg

DRUGS (12)
  1. ATEZOLIZUMAB [Suspect]
     Active Substance: ATEZOLIZUMAB
     Indication: Hepatocellular carcinoma
     Dosage: ON17/DEC/2021 MOST RECENT DOSE 1200 MG OF ATEZOLIZUMAB ADMINISTERED PRIOR TO SAE?ON 07/JAN/2022 MOST
     Route: 042
     Dates: start: 20210611
  2. BEVACIZUMAB [Suspect]
     Active Substance: BEVACIZUMAB
     Indication: Hepatocellular carcinoma
     Dosage: ON17/DEC/2021 MOST RECENT DOSE 1020 MG OF BEVACIZUMAB ADMINISTERED PRIOR TO SAE?ON 07/JAN/2022 MOST
     Route: 042
     Dates: start: 20210611
  3. ENTECAVIR [Concomitant]
     Active Substance: ENTECAVIR
     Indication: Hepatitis B
     Route: 048
     Dates: start: 20210421
  4. DESONIDE [Concomitant]
     Active Substance: DESONIDE
     Indication: Solar dermatitis
     Route: 061
     Dates: start: 20210907
  5. UREMIC CLEARANCE [Concomitant]
     Dates: start: 20211127, end: 20211203
  6. UREMIC CLEARANCE [Concomitant]
     Dates: start: 20211218, end: 20211224
  7. HERBALS\DIAMMONIUM GLYCYRRHIZINATE [Concomitant]
     Active Substance: HERBALS\DIAMMONIUM GLYCYRRHIZINATE
     Dates: start: 20211112, end: 20211118
  8. HERBALS\DIAMMONIUM GLYCYRRHIZINATE [Concomitant]
     Active Substance: HERBALS\DIAMMONIUM GLYCYRRHIZINATE
     Dates: start: 20211206, end: 20211212
  9. DIETARY SUPPLEMENT\HERBALS\MILK THISTLE [Concomitant]
     Active Substance: DIETARY SUPPLEMENT\HERBALS\MILK THISTLE
     Indication: Proteinuria
     Dates: start: 20211119, end: 20211125
  10. DIETARY SUPPLEMENT\HERBALS\MILK THISTLE [Concomitant]
     Active Substance: DIETARY SUPPLEMENT\HERBALS\MILK THISTLE
     Dates: start: 20211214, end: 20211220
  11. BICYCLOL [Concomitant]
     Active Substance: BICYCLOL
     Dates: start: 20211127, end: 20211203
  12. BICYCLOL [Concomitant]
     Active Substance: BICYCLOL
     Dates: start: 20220419, end: 20220526

REACTIONS (2)
  - Gamma-glutamyltransferase increased [Recovering/Resolving]
  - Proteinuria [Recovered/Resolved]

NARRATIVE: CASE EVENT DATE: 20211217
